FAERS Safety Report 8071727-8 (Version None)
Quarter: 2012Q1

REPORT INFORMATION
  Report Type: 
  Country: None (occurrence: None)
  Receive Date: 20120125
  Receipt Date: 20120117
  Transmission Date: 20120608
  Serious: Yes (Hospitalization, Disabling, Other)
  Sender: FDA-Public Use
  Company Number: US-MERCK-1107USA01810

PATIENT
  Age: 69 Year
  Sex: Female
  Weight: 78 kg

DRUGS (2)
  1. FOSAMAX [Suspect]
     Indication: OSTEOPOROSIS
     Route: 048
     Dates: start: 19980101, end: 20070801
  2. BONIVA [Suspect]
     Indication: OSTEOPOROSIS
     Route: 065
     Dates: start: 20070101, end: 20080101

REACTIONS (61)
  - DIABETIC NEUROPATHY [None]
  - SKIN ULCER [None]
  - RENAL IMPAIRMENT [None]
  - PAIN [None]
  - HYPOTENSION [None]
  - HYPERKERATOSIS [None]
  - ESCHAR [None]
  - MUSCULOSKELETAL PAIN [None]
  - CATARACT [None]
  - SPINAL OSTEOARTHRITIS [None]
  - LUMBAR SPINAL STENOSIS [None]
  - LUMBAR RADICULOPATHY [None]
  - IMPAIRED HEALING [None]
  - CELLULITIS [None]
  - CORONARY ARTERY DISEASE [None]
  - DIABETES MELLITUS INADEQUATE CONTROL [None]
  - ARTERIOSCLEROSIS [None]
  - OEDEMA PERIPHERAL [None]
  - OSTEOMYELITIS CHRONIC [None]
  - TINEA PEDIS [None]
  - HYPOTHYROIDISM [None]
  - HYPERPARATHYROIDISM [None]
  - GLAUCOMA [None]
  - INTERVERTEBRAL DISC DEGENERATION [None]
  - SLEEP APNOEA SYNDROME [None]
  - MEDIAL TIBIAL STRESS SYNDROME [None]
  - WOUND DRAINAGE [None]
  - TEMPOROMANDIBULAR JOINT SYNDROME [None]
  - PSYCHOTIC DISORDER [None]
  - PEDAL PULSE DECREASED [None]
  - RENAL FAILURE [None]
  - OVERDOSE [None]
  - DIZZINESS [None]
  - URINARY INCONTINENCE [None]
  - OSTEOARTHRITIS [None]
  - BACK PAIN [None]
  - ALOPECIA [None]
  - DECUBITUS ULCER [None]
  - DEVICE FAILURE [None]
  - DRUG HYPERSENSITIVITY [None]
  - TOOTH DISORDER [None]
  - MENISCUS LESION [None]
  - INFECTION [None]
  - FEMUR FRACTURE [None]
  - VESICAL FISTULA [None]
  - FALL [None]
  - CAROTID ARTERY STENOSIS [None]
  - HYPOGLYCAEMIA [None]
  - HEART VALVE INCOMPETENCE [None]
  - ABSCESS LIMB [None]
  - SPINAL COLUMN STENOSIS [None]
  - RESTING TREMOR [None]
  - NASAL CONGESTION [None]
  - CARDIOMYOPATHY [None]
  - ANAEMIA POSTOPERATIVE [None]
  - ACUTE SINUSITIS [None]
  - FRACTURE DELAYED UNION [None]
  - NECK PAIN [None]
  - PERIPHERAL VASCULAR DISORDER [None]
  - HYPERCALCAEMIA [None]
  - SKIN CANDIDA [None]
